FAERS Safety Report 14170484 (Version 4)
Quarter: 2018Q3

REPORT INFORMATION
  Report Type: Spontaneous
  Country: IE (occurrence: IE)
  Receive Date: 20171108
  Receipt Date: 20180726
  Transmission Date: 20181010
  Serious: Yes (Life-Threatening, Other)
  Sender: FDA-Public Use
  Company Number: IE-MYLANLABS-2017M1069252

PATIENT
  Age: 13 Year
  Sex: Male

DRUGS (7)
  1. BECLOMETASONE [Concomitant]
     Active Substance: BECLOMETHASONE DIPROPIONATE
     Indication: ASTHMA
     Dosage: 100 ?G, QD (TWO PUFF)
     Route: 055
  2. IBUPROFEN. [Suspect]
     Active Substance: IBUPROFEN
     Indication: ANALGESIC THERAPY
  3. CETIRIZINE [Concomitant]
     Active Substance: CETIRIZINE HYDROCHLORIDE
     Indication: ANTIALLERGIC THERAPY
     Dosage: 10 MG RARELY
     Route: 048
  4. SALBUTAMOL [Concomitant]
     Active Substance: ALBUTEROL
     Indication: ASTHMA
     Dosage: 100 ?G, (TWO PUFF WHEN NEEDED)
     Route: 055
  5. MOUTH WASH [Concomitant]
     Indication: PRODUCT USED FOR UNKNOWN INDICATION
     Dosage: MOUTH WASH
     Route: 048
  6. IBUPROFEN. [Suspect]
     Active Substance: IBUPROFEN
     Indication: DENTAL CARE
     Dosage: 2 DF, UNK
     Route: 048
  7. LIGNOSPAN SPECIAL [Suspect]
     Active Substance: EPINEPHRINE BITARTRATE\LIDOCAINE HYDROCHLORIDE
     Indication: DENTAL CARE
     Dosage: 20MG (LIDOCAINE)/12.5MICROG (EPINEPHRINE)
     Route: 065

REACTIONS (16)
  - Off label use [Recovered/Resolved]
  - Conjunctivitis [Recovered/Resolved]
  - Paraesthesia oral [Recovered/Resolved]
  - Throat tightness [Unknown]
  - Wheezing [Recovered/Resolved]
  - Angioedema [Recovered/Resolved]
  - Flushing [Unknown]
  - Lip oedema [Unknown]
  - Periorbital oedema [Unknown]
  - Rhinorrhoea [Unknown]
  - Aspirin-exacerbated respiratory disease [Unknown]
  - Hypersensitivity [Unknown]
  - Product use in unapproved indication [Recovered/Resolved]
  - Allergic respiratory disease [Recovered/Resolved]
  - Condition aggravated [Recovered/Resolved]
  - Chest discomfort [Recovered/Resolved]
